FAERS Safety Report 25606338 (Version 1)
Quarter: 2025Q3

REPORT INFORMATION
  Report Type: Spontaneous
  Country: None (occurrence: US)
  Receive Date: 20250725
  Receipt Date: 20250725
  Transmission Date: 20251020
  Serious: Yes (Other)
  Sender: TEVA
  Company Number: US-TEVA-VS-3354255

PATIENT
  Age: 3 Year
  Sex: Male

DRUGS (3)
  1. EPINEPHRINE [Suspect]
     Active Substance: EPINEPHRINE
     Indication: Food allergy
     Route: 058
     Dates: start: 20250716
  2. EPINEPHRINE [Suspect]
     Active Substance: EPINEPHRINE
     Route: 058
     Dates: start: 20250716
  3. EPINEPHRINE [Suspect]
     Active Substance: EPINEPHRINE
     Route: 058
     Dates: start: 20250716

REACTIONS (2)
  - Drug dose omission by device [Unknown]
  - Device failure [Unknown]

NARRATIVE: CASE EVENT DATE: 20250716
